FAERS Safety Report 23646857 (Version 1)
Quarter: 2024Q1

REPORT INFORMATION
  Report Type: Spontaneous
  Country: FR (occurrence: FR)
  Receive Date: 20240319
  Receipt Date: 20240319
  Transmission Date: 20240410
  Serious: Yes (Other)
  Sender: FDA-Public Use
  Company Number: None

PATIENT
  Age: 0 Year
  Sex: Female
  Weight: 3.02 kg

DRUGS (6)
  1. ATROVENT [Suspect]
     Active Substance: IPRATROPIUM BROMIDE
     Indication: Neonatal respiratory distress syndrome
     Route: 064
     Dates: start: 20230528, end: 20240130
  2. INNOVAIR [Suspect]
     Active Substance: BECLOMETHASONE DIPROPIONATE\FORMOTEROL
     Indication: Neonatal respiratory distress syndrome
     Dosage: 2 BOUFF?ES MATIN ET SOIR
     Route: 064
     Dates: start: 20230528, end: 20240130
  3. PREDNISONE [Suspect]
     Active Substance: PREDNISONE
     Indication: Neonatal respiratory distress syndrome
     Route: 064
     Dates: start: 20230528, end: 20240130
  4. ALBUTEROL SULFATE [Suspect]
     Active Substance: ALBUTEROL SULFATE
     Indication: Neonatal respiratory distress syndrome
     Dosage: ? LA DEMANDE
     Route: 064
     Dates: start: 20230528, end: 20240130
  5. BRICANYL [Suspect]
     Active Substance: TERBUTALINE SULFATE
     Indication: Neonatal respiratory distress syndrome
     Route: 064
     Dates: start: 20230528, end: 20240130
  6. GLYCOPYRROLATE [Suspect]
     Active Substance: GLYCOPYRROLATE
     Indication: Neonatal respiratory distress syndrome
     Dosage: 1 G?LULE/J
     Route: 064
     Dates: start: 20230528, end: 20240130

REACTIONS (3)
  - Maternal exposure during pregnancy [Not Recovered/Not Resolved]
  - Neonatal respiratory distress [Not Recovered/Not Resolved]
  - Bronchopulmonary dysplasia [Not Recovered/Not Resolved]

NARRATIVE: CASE EVENT DATE: 20230528
